FAERS Safety Report 21252392 (Version 7)
Quarter: 2023Q1

REPORT INFORMATION
  Report Type: Report from Study
  Country: RU (occurrence: RU)
  Receive Date: 20220825
  Receipt Date: 20230130
  Transmission Date: 20230418
  Serious: Yes (Hospitalization)
  Sender: FDA-Public Use
  Company Number: RU-NOVARTISPH-NVSC2022RU186914

PATIENT
  Age: 68 Year
  Sex: Female
  Weight: 72 kg

DRUGS (4)
  1. LETROZOLE [Suspect]
     Active Substance: LETROZOLE
     Indication: HER2 negative breast cancer
     Dosage: 2.5 MG, QD
     Route: 048
     Dates: start: 20200714
  2. ESSENTIALE [Concomitant]
     Indication: Alanine aminotransferase increased
     Dosage: 300 MG, TID
     Route: 048
     Dates: start: 20200728
  3. THYMINE [Concomitant]
     Active Substance: THYMINE
     Indication: Leukopenia
     Dosage: 1 TAB, TID
     Route: 048
     Dates: start: 20210323
  4. THYMINE [Concomitant]
     Active Substance: THYMINE
     Indication: Thrombocytopenia

REACTIONS (16)
  - Lens disorder [Recovered/Resolved]
  - Macular degeneration [Recovered/Resolved]
  - Epiretinal membrane [Recovered/Resolved]
  - Retinal fibrosis [Recovered/Resolved]
  - Macular oedema [Recovered/Resolved]
  - Vitreoretinal traction syndrome [Recovered/Resolved]
  - Astigmatism [Recovered/Resolved]
  - Macular hole [Recovered/Resolved]
  - Epiretinal membrane [Recovered/Resolved]
  - Retinal fibrosis [Recovered/Resolved]
  - Vitreoretinal traction syndrome [Recovered/Resolved]
  - Macular oedema [Recovered/Resolved]
  - Astigmatism [Recovered/Resolved]
  - Macular hole [Recovered/Resolved]
  - Cataract [Recovered/Resolved]
  - Cataract [Recovered/Resolved]

NARRATIVE: CASE EVENT DATE: 20220704
